FAERS Safety Report 7354340-7 (Version None)
Quarter: 2011Q1

REPORT INFORMATION
  Report Type: 
  Country: None (occurrence: None)
  Receive Date: 20110316
  Receipt Date: 20110310
  Transmission Date: 20110831
  Serious: Yes (Death)
  Sender: FDA-Public Use
  Company Number: US-JNJFOC-20110305612

PATIENT
  Age: 80 Year
  Sex: Male

DRUGS (2)
  1. DURAGESIC-50 [Suspect]
     Indication: CANCER PAIN
     Route: 062
  2. DURAGESIC-50 [Suspect]
     Route: 062

REACTIONS (1)
  - PROSTATE CANCER METASTATIC [None]
